FAERS Safety Report 9200490 (Version 2)
Quarter: 2013Q2

REPORT INFORMATION
  Report Type: Spontaneous
  Country: US (occurrence: US)
  Receive Date: 20130329
  Receipt Date: 20130412
  Transmission Date: 20140414
  Serious: Yes (Death)
  Sender: FDA-Public Use
  Company Number: US-ASTRAZENECA-2013SE19790

PATIENT
  Age: 21245 Day
  Sex: Male
  Weight: 80.3 kg

DRUGS (2)
  1. SYMBICORT [Suspect]
     Indication: CHRONIC OBSTRUCTIVE PULMONARY DISEASE
     Dosage: 160/4.5 UG, 2 PUFFS BID
     Route: 055
     Dates: start: 201201
  2. PAIN MEDICATION [Concomitant]
     Indication: PAIN

REACTIONS (1)
  - Small cell lung cancer metastatic [Fatal]
